FAERS Safety Report 7515567-4 (Version None)
Quarter: 2011Q2

REPORT INFORMATION
  Report Type: 
  Country: None (occurrence: None)
  Receive Date: 20110601
  Receipt Date: 20100712
  Transmission Date: 20111010
  Serious: Yes (Other)
  Sender: FDA-Public Use
  Company Number: US-PFIZER INC-2009300593

PATIENT
  Sex: Female

DRUGS (4)
  1. CHANTIX [Suspect]
     Indication: SMOKING CESSATION THERAPY
     Dosage: 0.5 MG, DAILY (1 TO 3 DAYS)
     Route: 048
     Dates: start: 20070829, end: 20071024
  2. CHANTIX [Suspect]
     Dosage: 1 MG, 2X/DAY (8 TO 28 DAYS)
     Dates: start: 20070829, end: 20071024
  3. LEVOTHYROXINE [Concomitant]
     Indication: HYPOTHYROIDISM
     Dosage: UNK
     Dates: start: 20060701
  4. CHANTIX [Suspect]
     Dosage: 0.5 MG, 2X/DAY (4 TO 7 DAYS)
     Dates: start: 20070829, end: 20071024

REACTIONS (5)
  - DEPRESSION [None]
  - AGITATION [None]
  - ANXIETY [None]
  - PHOBIA OF DRIVING [None]
  - PANIC ATTACK [None]
